FAERS Safety Report 6315594-9 (Version None)
Quarter: 2009Q3

REPORT INFORMATION
  Report Type: 
  Country: None (occurrence: None)
  Receive Date: 20090818
  Receipt Date: 20090805
  Transmission Date: 20100115
  Serious: Yes (Death)
  Sender: FDA-Public Use
  Company Number: 1000003693

PATIENT
  Sex: Female
  Weight: 2.835 kg

DRUGS (2)
  1. DINOPROSTONE (DINOPROSTONE) (VAGINAL INSERT) [Suspect]
     Dosage: (10 MG, ONCE), TRANSPLANTAL
     Route: 064
     Dates: start: 20081004, end: 20081004
  2. INSULIN [Concomitant]

REACTIONS (6)
  - APGAR SCORE LOW [None]
  - BRADYCARDIA FOETAL [None]
  - DEATH NEONATAL [None]
  - MATERNAL DRUGS AFFECTING FOETUS [None]
  - NEONATAL ANOXIA [None]
  - PULMONARY HAEMORRHAGE [None]
